FAERS Safety Report 6082787-8 (Version None)
Quarter: 2009Q1

REPORT INFORMATION
  Report Type: 
  Country: None (occurrence: None)
  Receive Date: 20090218
  Receipt Date: 20090213
  Transmission Date: 20090719
  Serious: Yes (Hospitalization)
  Sender: FDA-Public Use
  Company Number: BR-ASTRAZENECA-2009UW04390

PATIENT
  Age: 83 Year
  Sex: Female

DRUGS (7)
  1. CRESTOR [Suspect]
     Indication: HYPERCHOLESTEROLAEMIA
     Route: 048
  2. NEXIUM [Suspect]
     Indication: GASTRITIS
     Route: 048
     Dates: start: 20080601, end: 20080101
  3. NEXIUM [Suspect]
     Indication: HIATUS HERNIA
     Route: 048
     Dates: start: 20080601, end: 20080101
  4. NEXIUM [Suspect]
     Dosage: 40 MG IN THE MORNING AND 20 MG AT NIGHT
     Route: 048
  5. NEXIUM [Suspect]
     Dosage: 40 MG IN THE MORNING AND 20 MG AT NIGHT
     Route: 048
  6. ANCORON [Concomitant]
  7. CARVEDILOL [Concomitant]

REACTIONS (5)
  - ASTHENIA [None]
  - BURNING SENSATION [None]
  - DRUG INEFFECTIVE [None]
  - DRY MOUTH [None]
  - MALAISE [None]
